FAERS Safety Report 5516309-4 (Version None)
Quarter: 2007Q4

REPORT INFORMATION
  Report Type: 
  Country: None (occurrence: None)
  Receive Date: 20071114
  Receipt Date: 20070126
  Transmission Date: 20080405
  Serious: No
  Sender: FDA-Public Use
  Company Number: A0636938A

PATIENT
  Age: 49 Year
  Sex: Female

DRUGS (3)
  1. COMMIT [Suspect]
     Dates: start: 20070124, end: 20070124
  2. NICORETTE [Suspect]
  3. NICODERM CQ [Suspect]

REACTIONS (4)
  - ABNORMAL DREAMS [None]
  - FEELING ABNORMAL [None]
  - HEADACHE [None]
  - INTENTIONAL DRUG MISUSE [None]
